FAERS Safety Report 6079730-4 (Version None)
Quarter: 2009Q1

REPORT INFORMATION
  Report Type: 
  Country: None (occurrence: None)
  Receive Date: 20090211
  Receipt Date: 20090129
  Transmission Date: 20090719
  Serious: Yes (Other)
  Sender: FDA-Public Use
  Company Number: 1000003576

PATIENT
  Age: 66 Year
  Sex: Female

DRUGS (2)
  1. ESCITALOPRAM [Suspect]
     Indication: DEPRESSED MOOD
     Dosage: 20 MG (20 MG, AT BEDTIME), ORAL
     Route: 048
     Dates: start: 20060401
  2. ITOPRIDE [Suspect]
     Indication: DYSPEPSIA
     Dosage: 50 MG (50 MG, AT BEDTIME)
     Dates: start: 20060401

REACTIONS (5)
  - ANXIETY [None]
  - DRUG INTERACTION [None]
  - DYSPEPSIA [None]
  - NAUSEA [None]
  - TARDIVE DYSKINESIA [None]
